FAERS Safety Report 12592898 (Version 1)
Quarter: 2016Q3

REPORT INFORMATION
  Report Type: Spontaneous
  Country: US (occurrence: US)
  Receive Date: 20160726
  Receipt Date: 20160726
  Transmission Date: 20161109
  Serious: No
  Sender: FDA-Public Use
  Company Number: US-ABBVIE-16P-163-1531020-00

PATIENT
  Age: 58 Year
  Sex: Female

DRUGS (3)
  1. SYNTHROID [Suspect]
     Active Substance: LEVOTHYROXINE SODIUM
     Route: 048
     Dates: start: 201511
  2. CALCIUM [Concomitant]
     Active Substance: CALCIUM
     Indication: PRODUCT USED FOR UNKNOWN INDICATION
     Route: 065
     Dates: start: 201505
  3. SYNTHROID [Suspect]
     Active Substance: LEVOTHYROXINE SODIUM
     Indication: HYPOTHYROIDISM
     Route: 048
     Dates: start: 2014, end: 201511

REACTIONS (4)
  - Blood thyroid stimulating hormone increased [Recovering/Resolving]
  - Fatigue [Recovered/Resolved]
  - Emotional disorder [Recovered/Resolved]
  - Drug effect incomplete [Unknown]

NARRATIVE: CASE EVENT DATE: 201505
